FAERS Safety Report 4623278-8 (Version None)
Quarter: 2005Q1

REPORT INFORMATION
  Report Type: 
  Country: None (occurrence: None)
  Receive Date: 20050330
  Receipt Date: 20050322
  Transmission Date: 20050727
  Serious: Yes (Hospitalization, Other)
  Sender: FDA-Public Use
  Company Number: 2005042048

PATIENT
  Age: 63 Year
  Sex: Male
  Weight: 104.3273 kg

DRUGS (8)
  1. NEURONTIN [Suspect]
     Indication: NEUROPATHY
     Dosage: 200 MG (100 MG, 2 IN 1 D), ORAL
     Route: 048
     Dates: start: 20041001
  2. METFORMIN HCL [Concomitant]
  3. PIOGLITAZONE HCL [Concomitant]
  4. CLOPIDOGREL BISULFATE [Concomitant]
  5. TRAZODONE HCL [Concomitant]
  6. ATENOLOL [Concomitant]
  7. VITAMINS (VITAMINS) [Concomitant]
  8. PREDNISONE [Concomitant]

REACTIONS (3)
  - DRUG INEFFECTIVE [None]
  - FATIGUE [None]
  - VASCULAR OCCLUSION [None]
